FAERS Safety Report 11791848 (Version 1)
Quarter: 2015Q4

REPORT INFORMATION
  Report Type: Spontaneous
  Country: BR (occurrence: BR)
  Receive Date: 20151201
  Receipt Date: 20151201
  Transmission Date: 20160305
  Serious: Yes (Other)
  Sender: FDA-Public Use
  Company Number: CHPA2015BR014131

PATIENT
  Sex: Female
  Weight: 65 kg

DRUGS (5)
  1. OTRIVINA [Suspect]
     Active Substance: XYLOMETAZOLINE
     Dosage: UNK, QD
     Route: 045
  2. NARIDRIN [Concomitant]
     Indication: PRODUCT USED FOR UNKNOWN INDICATION
     Dosage: UNK
     Route: 065
  3. SALINE ORAL OTC [Concomitant]
     Active Substance: SODIUM CHLORIDE
     Indication: PRODUCT USED FOR UNKNOWN INDICATION
     Dosage: UNK
     Route: 065
  4. OTRIVINA [Suspect]
     Active Substance: XYLOMETAZOLINE
     Dosage: 2 BOTTLES PER WEEK
     Route: 045
  5. OTRIVINA [Suspect]
     Active Substance: XYLOMETAZOLINE
     Indication: NASAL CONGESTION
     Dosage: UNK, BID
     Route: 045
     Dates: start: 2005

REACTIONS (2)
  - Drug dependence [Recovering/Resolving]
  - Incorrect dose administered [Unknown]
